FAERS Safety Report 17855358 (Version 1)
Quarter: 2020Q2

REPORT INFORMATION
  Report Type: Spontaneous
  Country: US (occurrence: US)
  Receive Date: 20200603
  Receipt Date: 20200603
  Transmission Date: 20200714
  Serious: Yes (Other)
  Sender: FDA-Public Use
  Company Number: US-SA-2020SA141302

PATIENT

DRUGS (2)
  1. LANTUS [Suspect]
     Active Substance: INSULIN GLARGINE
     Indication: TYPE 2 DIABETES MELLITUS
     Dosage: 10-30 IU, QD
  2. INSULIN [Concomitant]
     Active Substance: INSULIN NOS
     Dosage: UNK UNK, TID

REACTIONS (2)
  - Neoplasm malignant [Unknown]
  - Blood glucose abnormal [Unknown]
